FAERS Safety Report 16810862 (Version 1)
Quarter: 2019Q3

REPORT INFORMATION
  Report Type: Spontaneous
  Country: PL (occurrence: PL)
  Receive Date: 20190916
  Receipt Date: 20190916
  Transmission Date: 20191005
  Serious: Yes (Hospitalization, Other)
  Sender: FDA-Public Use
  Company Number: PL-GLAXOSMITHKLINE-PL2019GSK166583

PATIENT
  Age: 65 Year
  Sex: Female

DRUGS (7)
  1. MONTELUKAST [Concomitant]
     Active Substance: MONTELUKAST SODIUM
     Indication: PRODUCT USED FOR UNKNOWN INDICATION
     Dosage: 10 MG, UNK (DAY)
     Route: 048
  2. FLUTICASONE. [Suspect]
     Active Substance: FLUTICASONE
     Indication: CHRONIC SINUSITIS
     Dosage: 27.5 MG, BID
     Route: 045
  3. FEXOFENADINE [Concomitant]
     Active Substance: FEXOFENADINE HYDROCHLORIDE
     Indication: PRODUCT USED FOR UNKNOWN INDICATION
     Dosage: 180 MG, QOD
  4. ASPIRIN. [Suspect]
     Active Substance: ASPIRIN
     Indication: CHRONIC RHINOSINUSITIS WITH NASAL POLYPS
     Dosage: 325 MG, BID
     Route: 048
     Dates: start: 200909, end: 20181017
  5. FLUTICASONE. [Concomitant]
     Active Substance: FLUTICASONE
     Indication: CHRONIC SINUSITIS
     Dosage: 1000 UG, UNK (DAY)
     Route: 055
  6. SALMETEROL [Concomitant]
     Active Substance: SALMETEROL
     Indication: PRODUCT USED FOR UNKNOWN INDICATION
     Dosage: UNK (DAILY)
  7. ASPIRIN. [Suspect]
     Active Substance: ASPIRIN
     Dosage: 300 MG, UNK
     Route: 048

REACTIONS (11)
  - Abdominal pain [Recovered/Resolved]
  - Hepatic steatosis [Recovered/Resolved]
  - Sinusitis [Unknown]
  - Condition aggravated [Unknown]
  - Aspartate aminotransferase increased [Recovering/Resolving]
  - Asthenia [Recovered/Resolved]
  - Drug-induced liver injury [Recovered/Resolved]
  - Hepatotoxicity [Recovered/Resolved]
  - Drug ineffective [Unknown]
  - Hepatic fibrosis [Recovered/Resolved]
  - Alanine aminotransferase increased [Recovering/Resolving]

NARRATIVE: CASE EVENT DATE: 201807
